FAERS Safety Report 17682160 (Version 1)
Quarter: 2020Q2

REPORT INFORMATION
  Report Type: Spontaneous
  Country: ES (occurrence: ES)
  Receive Date: 20200418
  Receipt Date: 20200418
  Transmission Date: 20200714
  Serious: Yes (Hospitalization)
  Sender: FDA-Public Use
  Company Number: NVSC2020ES102680

PATIENT
  Age: 87 Year
  Sex: Male

DRUGS (2)
  1. AMOXICILLIN, CLAVULANIC ACID [Suspect]
     Active Substance: AMOXICILLIN\CLAVULANIC ACID
     Indication: DEVICE RELATED INFECTION
     Dosage: 1 DF, QD
     Route: 048
     Dates: start: 20170120
  2. SINTROM [Interacting]
     Active Substance: ACENOCOUMAROL
     Indication: DEEP VEIN THROMBOSIS
     Dosage: 2 MG, QD ( 4 MG COMPRIMIDOS , 20 COMPRIMIDOS)
     Route: 048
     Dates: start: 20161114, end: 20190820

REACTIONS (2)
  - Hypocoagulable state [Recovered/Resolved]
  - Melaena [Recovered/Resolved]

NARRATIVE: CASE EVENT DATE: 20190819
